FAERS Safety Report 21604591 (Version 5)
Quarter: 2023Q1

REPORT INFORMATION
  Report Type: Spontaneous
  Country: JP (occurrence: JP)
  Receive Date: 20221116
  Receipt Date: 20230109
  Transmission Date: 20230418
  Serious: Yes (Life-Threatening, Hospitalization, Other)
  Sender: FDA-Public Use
  Company Number: JP-PFIZER INC-PV202200101175

PATIENT
  Age: 9 Day
  Sex: Male
  Weight: .35 kg

DRUGS (2)
  1. LINEZOLID [Suspect]
     Active Substance: LINEZOLID
     Indication: Catheter site infection
     Dosage: 10 MG/KG, 3X/DAY (EVERY 8 H)
  2. LINEZOLID [Suspect]
     Active Substance: LINEZOLID
     Indication: Staphylococcal infection

REACTIONS (2)
  - Lactic acidosis [Recovered/Resolved]
  - Neonatal hyperglycaemia [Recovered/Resolved]
